FAERS Safety Report 5680443-9 (Version None)
Quarter: 2008Q1

REPORT INFORMATION
  Report Type: 
  Country: None (occurrence: None)
  Receive Date: 20080326
  Receipt Date: 20080319
  Transmission Date: 20080703
  Serious: Yes (Hospitalization)
  Sender: FDA-Public Use
  Company Number: A0716453A

PATIENT
  Sex: Female

DRUGS (6)
  1. EPZICOM [Suspect]
     Indication: HIV INFECTION
     Route: 048
     Dates: start: 20070101
  2. VIRACEPT [Concomitant]
  3. UNSPECIFIED MEDICATION [Concomitant]
  4. TRILEPTAL [Concomitant]
  5. NEURONTIN [Concomitant]
  6. QUALIPEN [Concomitant]

REACTIONS (6)
  - ANXIETY [None]
  - BRUXISM [None]
  - DIARRHOEA [None]
  - DIZZINESS [None]
  - FATIGUE [None]
  - TREMOR [None]
